FAERS Safety Report 17353365 (Version 1)
Quarter: 2020Q1

REPORT INFORMATION
  Report Type: Spontaneous
  Country: US (occurrence: US)
  Receive Date: 20200131
  Receipt Date: 20200131
  Transmission Date: 20200409
  Serious: Yes (Other)
  Sender: FDA-Public Use
  Company Number: US-CURIUM-202000008

PATIENT
  Age: 68 Year
  Sex: Male

DRUGS (1)
  1. SODIUM IODIDE I 131 [Suspect]
     Active Substance: SODIUM IODIDE I-131
     Indication: RADIOACTIVE IODINE THERAPY
     Route: 065

REACTIONS (7)
  - Vena cava filter insertion [Unknown]
  - Pericardial effusion [Not Recovered/Not Resolved]
  - Deep vein thrombosis [Unknown]
  - Hypertension [Unknown]
  - Bipolar disorder [Unknown]
  - Chronic obstructive pulmonary disease [Unknown]
  - Hypothyroidism [Recovering/Resolving]
